FAERS Safety Report 9345082 (Version 1)
Quarter: 2013Q2

REPORT INFORMATION
  Report Type: Spontaneous
  Country: US (occurrence: US)
  Receive Date: 20130612
  Receipt Date: 20130612
  Transmission Date: 20140414
  Serious: No
  Sender: FDA-Public Use
  Company Number: US-TEVA-410921USA

PATIENT
  Age: 63 Year
  Sex: Male
  Weight: 97.61 kg

DRUGS (6)
  1. PROAIR HFA [Suspect]
     Indication: ASTHMA
     Dosage: 2 PUFFS QID PRN
     Dates: start: 20130601
  2. ADVAIR [Concomitant]
     Indication: ASTHMA
  3. OMEPRAZOLE [Concomitant]
     Indication: GASTROOESOPHAGEAL REFLUX DISEASE
  4. PAROXETINE [Concomitant]
  5. LIPITOR [Concomitant]
     Indication: HYPERCHOLESTEROLAEMIA
  6. ZYBAN [Concomitant]
     Indication: EX-TOBACCO USER

REACTIONS (2)
  - Dysphonia [Not Recovered/Not Resolved]
  - Dysphonia [Not Recovered/Not Resolved]
